FAERS Safety Report 5531456-9 (Version None)
Quarter: 2007Q4

REPORT INFORMATION
  Report Type: 
  Country: None (occurrence: None)
  Receive Date: 20071128
  Receipt Date: 20071128
  Transmission Date: 20080405
  Serious: Yes (Life-Threatening, Hospitalization, Disabling, Other)
  Sender: FDA-Public Use
  Company Number: None

PATIENT
  Age: 30 Year
  Sex: Female
  Weight: 67.1324 kg

DRUGS (2)
  1. ADDERALL XR 50 [Suspect]
     Indication: ATTENTION DEFICIT/HYPERACTIVITY DISORDER
     Dosage: 50MG DAILY PO
     Route: 048
     Dates: start: 20070901, end: 20071013
  2. ADDERALL XR 50 [Suspect]
     Indication: FLIGHT OF IDEAS
     Dosage: 50MG DAILY PO
     Route: 048
     Dates: start: 20070901, end: 20071013

REACTIONS (5)
  - BIPOLAR DISORDER [None]
  - ECONOMIC PROBLEM [None]
  - FAMILY STRESS [None]
  - LOSS OF EMPLOYMENT [None]
  - MANIA [None]
